FAERS Safety Report 5974984-4 (Version None)
Quarter: 2008Q4

REPORT INFORMATION
  Report Type: 
  Country: None (occurrence: None)
  Receive Date: 20081202
  Receipt Date: 20081121
  Transmission Date: 20090506
  Serious: Yes (Other)
  Sender: FDA-Public Use
  Company Number: US-PFIZER INC-2008042822

PATIENT
  Sex: Male
  Weight: 90.7 kg

DRUGS (22)
  1. VIAGRA [Suspect]
     Indication: SEXUAL DYSFUNCTION
     Route: 048
     Dates: start: 20081103, end: 20081110
  2. VIAGRA [Suspect]
     Indication: ERECTILE DYSFUNCTION
  3. ACTOS [Concomitant]
  4. NORVASC [Concomitant]
  5. ATENOLOL [Concomitant]
  6. BENAZEPRIL HYDROCHLORIDE [Concomitant]
  7. COZAAR [Concomitant]
  8. ASPIRIN [Concomitant]
  9. NEURONTIN [Concomitant]
  10. HUMALOG [Concomitant]
  11. PRAVASTATIN [Concomitant]
  12. SENSIPAR [Concomitant]
  13. TRICOR [Concomitant]
  14. WELCHOL [Concomitant]
  15. THERAGRAN-M [Concomitant]
  16. FISH OIL [Concomitant]
  17. NEXIUM [Concomitant]
  18. CALCITRIOL [Concomitant]
  19. ALL OTHER THERAPEUTIC PRODUCTS [Concomitant]
  20. INSULIN [Concomitant]
  21. ALL OTHER THERAPEUTIC PRODUCTS [Concomitant]
  22. OSCAL [Concomitant]

REACTIONS (4)
  - ASPERMIA [None]
  - BURNING SENSATION [None]
  - CHOLELITHIASIS [None]
  - PROSTATE CANCER RECURRENT [None]
